FAERS Safety Report 5187436-9 (Version None)
Quarter: 2006Q4

REPORT INFORMATION
  Report Type: 
  Country: None (occurrence: None)
  Receive Date: 20061220
  Receipt Date: 20060420
  Transmission Date: 20070319
  Serious: No
  Sender: FDA-Public Use
  Company Number: US-AMGEN-US176982

PATIENT
  Sex: Female

DRUGS (1)
  1. ENBREL [Suspect]
     Indication: PSORIASIS
     Route: 058
     Dates: start: 20040413

REACTIONS (5)
  - CELLULITIS STAPHYLOCOCCAL [None]
  - CONDITION AGGRAVATED [None]
  - PSORIASIS [None]
  - STRESS [None]
  - WEIGHT INCREASED [None]
